FAERS Safety Report 9890194 (Version 1)
Quarter: 2014Q1

REPORT INFORMATION
  Report Type: Spontaneous
  Country: US (occurrence: US)
  Receive Date: 20140212
  Receipt Date: 20140212
  Transmission Date: 20141002
  Serious: No
  Sender: FDA-Public Use
  Company Number: US-BIOGENIDEC-2014BI011796

PATIENT
  Age: 51 Year
  Sex: Female

DRUGS (21)
  1. TECFIDERA [Suspect]
     Indication: MULTIPLE SCLEROSIS
     Route: 048
     Dates: start: 20140109
  2. AMPHETAMINE SALTS [Concomitant]
  3. VITAMIN C [Concomitant]
  4. ONDANSETRON [Concomitant]
  5. GABAPENTIN [Concomitant]
  6. LORAZEPAM [Concomitant]
  7. LAMOTRIGINE [Concomitant]
  8. VALTREX [Concomitant]
  9. TRAZODONE [Concomitant]
  10. GAS FREE [Concomitant]
  11. IBUPROFEN [Concomitant]
  12. SELENIUM [Concomitant]
  13. NUVIGIL [Concomitant]
  14. VITAMIN B12 [Concomitant]
  15. VITAMIN E [Concomitant]
  16. FOLIC ACID [Concomitant]
  17. MELATONIN [Concomitant]
  18. VITAMIN D [Concomitant]
  19. PROBIOTIC [Concomitant]
  20. POLYETHYLENEGLYCOL [Concomitant]
  21. CITRACAL +D [Concomitant]

REACTIONS (10)
  - Hyperhidrosis [Unknown]
  - Back pain [Unknown]
  - Pain in extremity [Unknown]
  - Underdose [Unknown]
  - Pain [Unknown]
  - Flushing [Unknown]
  - Nausea [Unknown]
  - Diarrhoea [Unknown]
  - Abdominal pain upper [Unknown]
  - Abdominal pain [Unknown]
